FAERS Safety Report 10408725 (Version 1)
Quarter: 2014Q3

REPORT INFORMATION
  Report Type: Spontaneous
  Country: US (occurrence: US)
  Receive Date: 20140826
  Receipt Date: 20140826
  Transmission Date: 20150326
  Serious: Yes (Other)
  Sender: FDA-Public Use
  Company Number: US-JNJFOC-20140819766

PATIENT
  Sex: Female

DRUGS (3)
  1. TH-302 [Suspect]
     Active Substance: EVOFOSFAMIDE
     Indication: SARCOMA
     Route: 065
  2. G-CSF [Concomitant]
     Active Substance: FILGRASTIM
     Route: 065
  3. DOXORUBICIN HYDROCHLORIDE. [Suspect]
     Active Substance: DOXORUBICIN HYDROCHLORIDE
     Indication: SARCOMA
     Dosage: ON DAY 1, 2 HOURS AFTER TH-302 EVERY 21 DAYS FOR UPTO 6 CYCLES
     Route: 042

REACTIONS (2)
  - Off label use [Unknown]
  - Vaginal infection [Unknown]
